FAERS Safety Report 13919485 (Version 1)
Quarter: 2017Q3

REPORT INFORMATION
  Report Type: Report from Study
  Country: None (occurrence: US)
  Receive Date: 20170830
  Receipt Date: 20170830
  Transmission Date: 20171127
  Serious: Yes (Other)
  Sender: FDA-Public Use
  Company Number: US-BIOVITRUM-2017US0797

PATIENT
  Age: 62 Year
  Sex: Female

DRUGS (1)
  1. KINERET [Suspect]
     Active Substance: ANAKINRA
     Dosage: ^SQ 100 MG 1X^
     Route: 058
     Dates: start: 20170722, end: 20170824

REACTIONS (8)
  - Chest discomfort [Unknown]
  - Nausea [Unknown]
  - Dysuria [Unknown]
  - Eyelid oedema [Unknown]
  - Hyperhidrosis [Unknown]
  - Rash [Unknown]
  - Swelling face [Unknown]
  - Urticaria [Unknown]

NARRATIVE: CASE EVENT DATE: 201708
